FAERS Safety Report 4791285-0 (Version None)
Quarter: 2005Q4

REPORT INFORMATION
  Report Type: 
  Country: None (occurrence: None)
  Receive Date: 20051007
  Receipt Date: 20050926
  Transmission Date: 20060501
  Serious: Yes (Hospitalization, Other)
  Sender: FDA-Public Use
  Company Number: 2005GB01858

PATIENT
  Age: 62 Year
  Sex: Male

DRUGS (5)
  1. OMEPRAZOLE [Suspect]
     Indication: GASTROINTESTINAL HAEMORRHAGE
     Route: 048
     Dates: start: 20050901
  2. LANSOPRAZOLE [Suspect]
     Indication: GASTROINTESTINAL HAEMORRHAGE
     Route: 048
     Dates: start: 20040601, end: 20050901
  3. ASPIRIN [Concomitant]
     Route: 065
     Dates: end: 20041101
  4. CLOPIDOGREL [Concomitant]
     Route: 065
     Dates: end: 20041101
  5. FERROUS SULFATE TAB [Concomitant]
     Route: 065
     Dates: end: 20050801

REACTIONS (4)
  - GASTROINTESTINAL HAEMORRHAGE [None]
  - GYNAECOMASTIA [None]
  - MUSCLE SPASMS [None]
  - PRURITUS [None]
